FAERS Safety Report 24853048 (Version 3)
Quarter: 2025Q3

REPORT INFORMATION
  Report Type: Report from Study
  Country: US (occurrence: US)
  Receive Date: 20250116
  Receipt Date: 20250810
  Transmission Date: 20251020
  Serious: No
  Sender: ALEXION PHARMACEUTICALS
  Company Number: US-AstraZeneca-CH-00719289AP

PATIENT
  Sex: Male

DRUGS (1)
  1. EXENATIDE [Suspect]
     Active Substance: EXENATIDE

REACTIONS (7)
  - Blood glucose increased [Unknown]
  - Drug dose omission by device [Unknown]
  - Incorrect dose administered by device [Unknown]
  - Device malfunction [Unknown]
  - Device leakage [Unknown]
  - Accidental exposure to product [Unknown]
  - Device use issue [Unknown]
